FAERS Safety Report 4855831-0 (Version None)
Quarter: 2005Q4

REPORT INFORMATION
  Report Type: 
  Country: None (occurrence: None)
  Receive Date: 20051215
  Receipt Date: 20051215
  Transmission Date: 20060501
  Serious: Yes (Hospitalization)
  Sender: FDA-Public Use
  Company Number: None

PATIENT
  Age: 95 Year
  Sex: Female

DRUGS (5)
  1. LISINOPRIL [Suspect]
     Indication: HYPERTENSION
     Dosage: 10 MG DAILY PO
     Route: 048
     Dates: start: 20011102, end: 20050912
  2. MAXZIDE [Concomitant]
  3. WARFARIN [Concomitant]
  4. CALCIUM / VITAMIN D [Concomitant]
  5. COLACE [Concomitant]

REACTIONS (3)
  - ANGIONEUROTIC OEDEMA [None]
  - PHARYNGOLARYNGEAL PAIN [None]
  - THROAT TIGHTNESS [None]
